FAERS Safety Report 18247696 (Version 1)
Quarter: 2020Q3

REPORT INFORMATION
  Report Type: Spontaneous
  Country: US (occurrence: US)
  Receive Date: 20200909
  Receipt Date: 20200909
  Transmission Date: 20201103
  Serious: No
  Sender: FDA-Public Use
  Company Number: US-MYLANLABS-2020M1073094

PATIENT
  Sex: Female
  Weight: 46 kg

DRUGS (5)
  1. TRAZODONE [Concomitant]
     Active Substance: TRAZODONE HYDROCHLORIDE
     Dosage: 100 MILLIGRAM, PM
     Route: 048
  2. ESTRADIOL. [Suspect]
     Active Substance: ESTRADIOL
     Indication: HOT FLUSH
     Dosage: QW
     Route: 062
  3. MAGNESIUM [Concomitant]
     Active Substance: MAGNESIUM
     Indication: GASTROINTESTINAL DISORDER
  4. TYLENOL [Concomitant]
     Active Substance: ACETAMINOPHEN
     Dosage: UNK UNK, PM
  5. MAGNESIUM [Concomitant]
     Active Substance: MAGNESIUM
     Indication: NERVE INJURY
     Dosage: UNK

REACTIONS (2)
  - Application site burn [Unknown]
  - Application site vesicles [Unknown]
